FAERS Safety Report 5665157-3 (Version None)
Quarter: 2008Q1

REPORT INFORMATION
  Report Type: 
  Country: None (occurrence: None)
  Receive Date: 20080314
  Receipt Date: 20080228
  Transmission Date: 20080703
  Serious: Yes (Other)
  Sender: FDA-Public Use
  Company Number: NL-GENENTECH-256973

PATIENT
  Sex: Male

DRUGS (2)
  1. OMALIZUMAB [Suspect]
     Indication: DRUG USE FOR UNKNOWN INDICATION
     Dosage: 375 MG, 2/WEEK
     Route: 065
     Dates: start: 20070626, end: 20080221
  2. FLIXONASE [Concomitant]
     Indication: DRUG USE FOR UNKNOWN INDICATION

REACTIONS (1)
  - ALLERGIC GRANULOMATOUS ANGIITIS [None]
